FAERS Safety Report 6120953-3 (Version None)
Quarter: 2009Q1

REPORT INFORMATION
  Report Type: 
  Country: None (occurrence: None)
  Receive Date: 20090313
  Receipt Date: 20090219
  Transmission Date: 20090719
  Serious: Yes (Hospitalization)
  Sender: FDA-Public Use
  Company Number: 211682

PATIENT
  Age: 63 Year
  Sex: Male
  Weight: 57 kg

DRUGS (6)
  1. CARBOPLATIN [Suspect]
     Indication: NON-SMALL CELL LUNG CANCER
     Dosage: 6, AUC, INTRAVENOUS
     Route: 042
     Dates: start: 20081009
  2. PACLITAXEL [Suspect]
     Indication: NON-SMALL CELL LUNG CANCER
     Dosage: 200 MG/M2, 1 IN 3 WEEKS, INTRAVENOUS
     Route: 042
     Dates: start: 20081009
  3. (INVESTIGATIONAL DRUG) [Suspect]
     Indication: NON-SMALL CELL LUNG CANCER
  4. PERINDOPRIL ERBUMINE [Concomitant]
  5. METOPROLOL TARTRATE [Concomitant]
  6. DBL TRAMADOL INJECTION TRAMADOL HYDROCHLORIDE 100 MG/2 ML INJECTION AM [Concomitant]

REACTIONS (3)
  - ANAEMIA [None]
  - GRANULOCYTOPENIA [None]
  - THROMBOCYTOPENIA [None]
